FAERS Safety Report 25405749 (Version 2)
Quarter: 2025Q2

REPORT INFORMATION
  Report Type: Spontaneous
  Country: CO (occurrence: CO)
  Receive Date: 20250606
  Receipt Date: 20250616
  Transmission Date: 20250717
  Serious: Yes (Other)
  Sender: BAYER HEALTHCARE PHARMACEUTICALS INC.
  Company Number: CO-BAYER-2025A075616

PATIENT
  Age: 75 Year
  Sex: Female

DRUGS (1)
  1. ADEMPAS [Suspect]
     Active Substance: RIOCIGUAT
     Indication: Pulmonary arterial hypertension
     Dosage: 2.5 MG, Q8HR
     Route: 048

REACTIONS (6)
  - Oxygen saturation decreased [None]
  - Hypoxia [None]
  - Dysstasia [None]
  - Mobility decreased [None]
  - Urinary tract infection [None]
  - Pain [None]

NARRATIVE: CASE EVENT DATE: 20250530
